FAERS Safety Report 10560646 (Version 2)
Quarter: 2014Q4

REPORT INFORMATION
  Report Type: Spontaneous
  Country: CA (occurrence: CA)
  Receive Date: 20141103
  Receipt Date: 20141117
  Transmission Date: 20150529
  Serious: Yes (Other)
  Sender: FDA-Public Use
  Company Number: CA-ACTAVIS-2014-23305

PATIENT
  Sex: Female

DRUGS (4)
  1. LANSOPRAZOLE. [Concomitant]
     Active Substance: LANSOPRAZOLE
     Indication: GASTROOESOPHAGEAL REFLUX DISEASE
     Dosage: 1 DF, 1/WEEK
     Route: 048
     Dates: start: 20090611
  2. ZARAH [Suspect]
     Active Substance: DROSPIRENONE\ETHINYL ESTRADIOL
     Indication: CONTRACEPTION
     Dosage: 1 DF, DAILY
     Route: 048
     Dates: start: 20131203, end: 20140808
  3. ELTROXIN [Concomitant]
     Active Substance: LEVOTHYROXINE
     Indication: HYPOTHYROIDISM
     Dosage: 1 DF, DAILY
     Route: 048
     Dates: start: 20140417
  4. BUPROPION [Concomitant]
     Active Substance: BUPROPION
     Indication: ANTIDEPRESSANT THERAPY
     Dosage: 1 DF, DAILY
     Route: 048
     Dates: start: 20090513

REACTIONS (6)
  - Product substitution issue [Unknown]
  - Acne [Not Recovered/Not Resolved]
  - Mood swings [Unknown]
  - Mood altered [Recovered/Resolved]
  - Muscle spasms [Recovered/Resolved]
  - Skin irritation [Recovering/Resolving]
